FAERS Safety Report 10518879 (Version 1)
Quarter: 2014Q4

REPORT INFORMATION
  Report Type: Spontaneous
  Country: US (occurrence: None)
  Receive Date: 20141014
  Receipt Date: 20141014
  Transmission Date: 20150528
  Serious: No
  Sender: FDA-Public Use
  Company Number: None

PATIENT

DRUGS (2)
  1. FLUORIDE [Suspect]
     Active Substance: SODIUM FLUORIDE
     Route: 048
  2. FLUORIDE [Suspect]
     Active Substance: SODIUM FLUORIDE
     Route: 048

REACTIONS (2)
  - Intercepted drug dispensing error [None]
  - Drug dispensing error [None]
